FAERS Safety Report 15457016 (Version 1)
Quarter: 2018Q4

REPORT INFORMATION
  Report Type: Spontaneous
  Country: US (occurrence: US)
  Receive Date: 20181002
  Receipt Date: 20181002
  Transmission Date: 20190204
  Serious: Yes (Death)
  Sender: FDA-Public Use
  Company Number: US-ACTELION-A-US2014-106069

PATIENT
  Age: 78 Year
  Sex: Female

DRUGS (9)
  1. OPSUMIT [Suspect]
     Active Substance: MACITENTAN
     Indication: COR PULMONALE CHRONIC
     Dosage: 10 MG, QD
     Route: 048
     Dates: start: 20140908, end: 20180723
  2. SINGULAIR [Concomitant]
     Active Substance: MONTELUKAST SODIUM
  3. POTASSIUM CHLORIDE. [Concomitant]
     Active Substance: POTASSIUM CHLORIDE
  4. FOSAMAX [Concomitant]
     Active Substance: ALENDRONATE SODIUM
  5. NIFEDIPINE. [Concomitant]
     Active Substance: NIFEDIPINE
  6. INVANZ [Concomitant]
     Active Substance: ERTAPENEM SODIUM
  7. ADCIRCA [Concomitant]
     Active Substance: TADALAFIL
  8. PRILOSEC [Concomitant]
     Active Substance: OMEPRAZOLE MAGNESIUM
  9. LOSARTAN. [Concomitant]
     Active Substance: LOSARTAN

REACTIONS (5)
  - Sepsis [Fatal]
  - Respiratory failure [Fatal]
  - Nasal congestion [Not Recovered/Not Resolved]
  - Cholecystitis acute [Fatal]
  - Headache [Not Recovered/Not Resolved]

NARRATIVE: CASE EVENT DATE: 20140910
